FAERS Safety Report 4686698-1 (Version None)
Quarter: 2005Q2

REPORT INFORMATION
  Report Type: 
  Country: None (occurrence: None)
  Receive Date: 20050608
  Receipt Date: 20050523
  Transmission Date: 20051028
  Serious: Yes (Other)
  Sender: FDA-Public Use
  Company Number: 2005082680

PATIENT
  Age: 27 Year
  Sex: Female
  Weight: 56 kg

DRUGS (4)
  1. DEPO-PROVERA [Suspect]
     Indication: ILL-DEFINED DISORDER
     Dosage: 150 MG (150 MG), INTRAMUSCULAR
     Route: 030
  2. PROBANTHINE (PROPANTHELINE BROMIDE) [Suspect]
     Indication: ILL-DEFINED DISORDER
  3. AUGMENTIN (AMOXICILLIN TRIHYDRATE, CLAULANATE POTASSIUM) [Concomitant]
  4. METHADONE HCL [Concomitant]

REACTIONS (4)
  - ABDOMINAL PAIN [None]
  - HYPERHIDROSIS [None]
  - SYNCOPE [None]
  - VOMITING [None]
